FAERS Safety Report 22539626 (Version 1)
Quarter: 2023Q2

REPORT INFORMATION
  Report Type: Report from Study
  Country: EG (occurrence: EG)
  Receive Date: 20230609
  Receipt Date: 20230609
  Transmission Date: 20230721
  Serious: Yes (Hospitalization, Other)
  Sender: FDA-Public Use
  Company Number: EG-002147023-NVSC2023EG130636

PATIENT
  Age: 74 Year
  Sex: Female

DRUGS (2)
  1. HYRIMOZ [Suspect]
     Active Substance: ADALIMUMAB-ADAZ
     Indication: Rheumatoid arthritis
     Dosage: 40 MG, Q2W (EVERY OTHER WEEK)
     Route: 058
     Dates: start: 20220515, end: 20230317
  2. SOLUPRED [Concomitant]
     Indication: Rheumatoid arthritis
     Dosage: 1 DOSAGE FORM, QD (STARTED 9 YEARS AGO)
     Route: 065

REACTIONS (6)
  - Blood sodium decreased [Recovered/Resolved]
  - Blood potassium decreased [Recovered/Resolved]
  - COVID-19 pneumonia [Recovered/Resolved]
  - COVID-19 pneumonia [Recovered/Resolved]
  - Bacterial infection [Recovered/Resolved]
  - C-reactive protein increased [Not Recovered/Not Resolved]

NARRATIVE: CASE EVENT DATE: 20230317
